FAERS Safety Report 15136265 (Version 3)
Quarter: 2018Q4

REPORT INFORMATION
  Report Type: Spontaneous
  Country: US (occurrence: US)
  Receive Date: 20180712
  Receipt Date: 20181022
  Transmission Date: 20190204
  Serious: Yes (Hospitalization, Other)
  Sender: FDA-Public Use
  Company Number: US-SA-2018SA177865

PATIENT
  Age: 48 Year
  Sex: Female

DRUGS (9)
  1. NEURONTIN [Concomitant]
     Active Substance: GABAPENTIN
  2. AUBAGIO [Suspect]
     Active Substance: TERIFLUNOMIDE
     Dosage: 14 MG, QD
     Route: 048
     Dates: start: 20150625
  3. XANAX [Concomitant]
     Active Substance: ALPRAZOLAM
  4. B12 [CYANOCOBALAMIN] [Concomitant]
  5. AUBAGIO [Suspect]
     Active Substance: TERIFLUNOMIDE
     Dosage: 14 MG, QD
     Route: 048
     Dates: start: 20170914
  6. DYAZIDE [Concomitant]
     Active Substance: HYDROCHLOROTHIAZIDE\TRIAMTERENE
  7. CELEXA [CELECOXIB] [Concomitant]
  8. VITAMIN D [Concomitant]
     Active Substance: CHOLECALCIFEROL
  9. MOTRIN [Concomitant]
     Active Substance: IBUPROFEN

REACTIONS (5)
  - Multiple sclerosis relapse [Unknown]
  - Cystitis [Unknown]
  - Asthenia [Unknown]
  - Gait disturbance [Unknown]
  - Sensory loss [Unknown]

NARRATIVE: CASE EVENT DATE: 20180626
